FAERS Safety Report 20502693 (Version 2)
Quarter: 2022Q1

REPORT INFORMATION
  Report Type: Spontaneous
  Country: US (occurrence: US)
  Receive Date: 20220222
  Receipt Date: 20220223
  Transmission Date: 20220423
  Serious: No
  Sender: FDA-Public Use
  Company Number: US-JNJFOC-20220243109

PATIENT
  Sex: Female

DRUGS (1)
  1. IMODIUM MULTI-SYMPTOM RELIEF [Suspect]
     Active Substance: DIMETHICONE\LOPERAMIDE HYDROCHLORIDE
     Indication: Diarrhoea
     Dosage: INITIALLY TOOK 2 CAPLETS AND 1 CAPLET ON THE NEXT DOSE ONCE YESTERDAY, TWICE THIS DAY
     Route: 048

REACTIONS (1)
  - Diarrhoea [Unknown]
